FAERS Safety Report 12625387 (Version 1)
Quarter: 2016Q3

REPORT INFORMATION
  Report Type: Spontaneous
  Country: US (occurrence: None)
  Receive Date: 20160804
  Receipt Date: 20160804
  Transmission Date: 20161109
  Serious: No
  Sender: FDA-Public Use
  Company Number: None

PATIENT
  Age: 27 Year
  Sex: Female

DRUGS (1)
  1. GLATOPA [Suspect]
     Active Substance: GLATIRAMER ACETATE
     Indication: MULTIPLE SCLEROSIS

REACTIONS (7)
  - Ocular hyperaemia [None]
  - Palpitations [None]
  - Erythema [None]
  - Dizziness [None]
  - Vomiting [None]
  - Lip discolouration [None]
  - Nausea [None]

NARRATIVE: CASE EVENT DATE: 20160803
